FAERS Safety Report 17152873 (Version 5)
Quarter: 2020Q2

REPORT INFORMATION
  Report Type: Report from Study
  Country: JP (occurrence: JP)
  Receive Date: 20191213
  Receipt Date: 20200406
  Transmission Date: 20200713
  Serious: Yes (Hospitalization)
  Sender: FDA-Public Use
  Company Number: JP-PFIZER INC-2019535952

PATIENT
  Age: 15 Year
  Sex: Male
  Weight: 48 kg

DRUGS (13)
  1. SIROLIMUS. [Suspect]
     Active Substance: SIROLIMUS
     Dosage: 2 MG, 1X/DAY (2 TAB/DAY)
     Route: 048
     Dates: start: 20181109, end: 20181224
  2. SIROLIMUS. [Suspect]
     Active Substance: SIROLIMUS
     Dosage: 1 MG, 1X/DAY (1 TAB/DAY)
     Route: 048
     Dates: start: 20181225, end: 20190507
  3. SIROLIMUS. [Suspect]
     Active Substance: SIROLIMUS
     Dosage: 2 MG, 1X/DAY (2 TAB/DAY)
     Route: 048
     Dates: start: 20190508, end: 20191208
  4. SIROLIMUS. [Suspect]
     Active Substance: SIROLIMUS
     Dosage: 2 MG, 1X/DAY (2 MG/DAY)
     Route: 048
     Dates: start: 20200205
  5. MIYA-BM [Concomitant]
     Active Substance: CLOSTRIDIUM BUTYRICUM SPORES STRAIN M-55
     Indication: GASTROINTESTINAL DISORDER THERAPY
     Dosage: (1 DOSAGE FORMS,8 HR)
     Route: 048
  6. BLINDED THERAPY [Suspect]
     Active Substance: INVESTIGATIONAL PRODUCT
     Indication: FIBRODYSPLASIA OSSIFICANS PROGRESSIVA
     Dosage: 1 MG, 1X/DAY (1 TAB/DAY)
     Route: 048
     Dates: start: 20180424, end: 20180522
  7. MYONAL [NIMESULIDE] [Concomitant]
     Active Substance: NIMESULIDE
     Indication: MUSCLE TIGHTNESS
     Dosage: (1 DOSAGE FORMS,12 HR)
     Route: 048
  8. FAMOTIDINE D [Concomitant]
     Active Substance: FAMOTIDINE
     Indication: ANTACID THERAPY
     Dosage: UNK
     Route: 048
     Dates: start: 20180829
  9. SIROLIMUS. [Suspect]
     Active Substance: SIROLIMUS
     Indication: FIBRODYSPLASIA OSSIFICANS PROGRESSIVA
     Dosage: 1 MG, 1X/DAY (1 TAB/DAY)
     Route: 048
     Dates: start: 20181011, end: 20181108
  10. LOXOPROFEN [Concomitant]
     Active Substance: LOXOPROFEN
     Indication: ANALGESIC THERAPY
     Dosage: UNK
     Route: 048
     Dates: start: 20180427
  11. BLINDED THERAPY [Suspect]
     Active Substance: INVESTIGATIONAL PRODUCT
     Dosage: 3 MG, 1X/DAY (3 TAB/DAY)
     Route: 048
     Dates: start: 20180523, end: 20181010
  12. DAIKENCHUTO [Concomitant]
     Active Substance: HERBALS
     Indication: ABDOMINAL DISCOMFORT
     Dosage: 2.5 G, UNK
     Route: 048
  13. CALONAL [Concomitant]
     Active Substance: ACETAMINOPHEN
     Indication: ANALGESIC THERAPY
     Dosage: UNK
     Route: 048

REACTIONS (2)
  - Pleurisy [Recovered/Resolved]
  - Pneumonia [Recovered/Resolved]

NARRATIVE: CASE EVENT DATE: 20191128
